FAERS Safety Report 8436015-6 (Version None)
Quarter: 2012Q2

REPORT INFORMATION
  Report Type: 
  Country: None (occurrence: None)
  Receive Date: 20120614
  Receipt Date: 20120612
  Transmission Date: 20120825
  Serious: Yes (Hospitalization)
  Sender: FDA-Public Use
  Company Number: AT-FRI-1000029090

PATIENT
  Age: 82 Year
  Sex: Male

DRUGS (7)
  1. HALOPERIDOL [Suspect]
     Dosage: 10 MG
  2. XIPAMID [Concomitant]
     Dosage: 40 MG
  3. INSULIN MIXTARD [Concomitant]
     Dosage: 50 ML IN THE MORNING OR 30 ML IN THE EVENING
  4. CITALOPRAM HYDROBROMIDE [Suspect]
     Dosage: 5 MG
  5. ASPIRIN [Concomitant]
     Dosage: 100 MG
  6. PANTOPRAZOLE [Concomitant]
     Dosage: 40 MG
  7. LISINOPRIL [Concomitant]
     Dosage: 5 MG

REACTIONS (3)
  - CONGESTIVE CARDIOMYOPATHY [None]
  - ELECTROCARDIOGRAM QT PROLONGED [None]
  - LEFT VENTRICULAR DYSFUNCTION [None]
